FAERS Safety Report 23449269 (Version 1)
Quarter: 2024Q1

REPORT INFORMATION
  Report Type: Spontaneous
  Country: US (occurrence: US)
  Receive Date: 20240129
  Receipt Date: 20240129
  Transmission Date: 20240410
  Serious: No
  Sender: FDA-Public Use
  Company Number: US-OPELLA-2024OHG002298

PATIENT

DRUGS (2)
  1. DULCOLAX (BISACODYL) [Suspect]
     Active Substance: BISACODYL
     Indication: Product used for unknown indication
  2. DULCOLAX (BISACODYL) [Suspect]
     Active Substance: BISACODYL
     Dosage: DOUBLE DOSAGE

REACTIONS (3)
  - Drug ineffective [Unknown]
  - No adverse event [Unknown]
  - Extra dose administered [Unknown]
